FAERS Safety Report 12531319 (Version 1)
Quarter: 2016Q3

REPORT INFORMATION
  Report Type: Spontaneous
  Country: JP (occurrence: JP)
  Receive Date: 20160706
  Receipt Date: 20160706
  Transmission Date: 20161109
  Serious: No
  Sender: FDA-Public Use
  Company Number: JP-JNJFOC-20160701941

PATIENT

DRUGS (1)
  1. FENTANYL. [Suspect]
     Active Substance: FENTANYL
     Indication: CANCER PAIN
     Route: 062
     Dates: start: 20160622

REACTIONS (3)
  - Incorrect drug administration duration [Unknown]
  - Therapy naive [Unknown]
  - Off label use [Unknown]

NARRATIVE: CASE EVENT DATE: 20160622
